FAERS Safety Report 6618121-1 (Version None)
Quarter: 2010Q1

REPORT INFORMATION
  Report Type: 
  Country: None (occurrence: None)
  Receive Date: 20100308
  Receipt Date: 20100228
  Transmission Date: 20100710
  Serious: Yes (Death)
  Sender: FDA-Public Use
  Company Number: EG-ROCHE-687658

PATIENT
  Age: 41 Year
  Sex: Female
  Weight: 110 kg

DRUGS (3)
  1. HERCEPTIN [Suspect]
     Indication: BREAST CANCER
     Dosage: ROUTE:REPORTED AS INFUSION. FREQUENCY: 3 WEEKLY CYCLE
     Route: 050
     Dates: start: 20090714, end: 20091215
  2. INSULIN [Concomitant]
     Route: 058
     Dates: start: 20050101, end: 20091215
  3. CAPOZIDE 25/15 [Concomitant]
     Indication: HYPERTENSION
     Route: 048
     Dates: start: 20050101, end: 20091215

REACTIONS (1)
  - HEPATIC FAILURE [None]
